FAERS Safety Report 25650048 (Version 1)
Quarter: 2025Q3

REPORT INFORMATION
  Report Type: Spontaneous
  Country: EU (occurrence: EU)
  Receive Date: 20250806
  Receipt Date: 20250806
  Transmission Date: 20251020
  Serious: Yes (Life-Threatening, Hospitalization)
  Sender: ABBVIE
  Company Number: None

PATIENT
  Age: 20 Year
  Sex: Female
  Weight: 63 kg

DRUGS (1)
  1. UPADACITINIB [Suspect]
     Active Substance: UPADACITINIB
     Indication: Crohn^s disease
     Dosage: 1X DAILY 45MG
     Route: 048
     Dates: start: 20250625, end: 20250721

REACTIONS (2)
  - Peritonitis [Recovered/Resolved]
  - Ileal perforation [Recovered/Resolved]
